FAERS Safety Report 8017577-X (Version None)
Quarter: 2011Q4

REPORT INFORMATION
  Report Type: 
  Country: None (occurrence: None)
  Receive Date: 20111229
  Receipt Date: 20111229
  Transmission Date: 20120403
  Serious: Yes (Death)
  Sender: FDA-Public Use
  Company Number: None

PATIENT
  Age: 67 Year
  Sex: Female
  Weight: 90.8 kg

DRUGS (12)
  1. CARBOPLATIN [Suspect]
     Indication: BREAST CANCER
     Dosage: 250MG, Q-WEEK, IV
     Route: 042
     Dates: start: 20110923, end: 20111212
  2. LISINOPRIL AND HYDROCHLOROTHIAZIDE [Concomitant]
  3. PACLITAXEL [Suspect]
     Indication: BREAST CANCER
     Dosage: 205MG, Q-WEEK, IV
     Route: 042
     Dates: start: 20110923, end: 20111212
  4. CYCLOPHOSPHAMIDE [Concomitant]
  5. MULTI-VITAMIN [Concomitant]
  6. PEGFILGRASTIM [Concomitant]
  7. METOPROLOL TARTRATE [Concomitant]
  8. PROCHLORPERAZINE [Concomitant]
  9. OMEPRAZOLE [Concomitant]
  10. VORINOSTAT/PLACEBO, 400MG, MERCK + COMPANY [Suspect]
     Indication: BREAST CANCER
     Dosage: 400MG D1-3/Q-WEEK
     Dates: start: 20110923, end: 20111214
  11. DOXORUBICIN HCL [Concomitant]
  12. FISH OIL [Concomitant]

REACTIONS (7)
  - CARDIO-RESPIRATORY ARREST [None]
  - SYNCOPE [None]
  - DIARRHOEA [None]
  - SYSTEMIC INFLAMMATORY RESPONSE SYNDROME [None]
  - SEPTIC SHOCK [None]
  - BONE MARROW DISORDER [None]
  - FATIGUE [None]
